FAERS Safety Report 4546258-X (Version None)
Quarter: 2005Q1

REPORT INFORMATION
  Report Type: 
  Country: None (occurrence: None)
  Receive Date: 20050103
  Receipt Date: 20041220
  Transmission Date: 20050727
  Serious: Yes (Death, Life-Threatening, Hospitalization)
  Sender: FDA-Public Use
  Company Number: 2003006571

PATIENT
  Age: 66 Year
  Sex: Male

DRUGS (5)
  1. VIAGRA [Suspect]
     Indication: PULMONARY HYPERTENSION
     Dosage: 200 MG (4 IN 1 D), ORAL
     Route: 048
     Dates: end: 20030101
  2. AMIODARONE HCL [Concomitant]
  3. WARFARIN (WARFARIN) [Concomitant]
  4. ASPIRIN [Concomitant]
  5. DYAZIDE [Concomitant]

REACTIONS (16)
  - BLOOD PRESSURE SYSTOLIC INCREASED [None]
  - CEREBROVASCULAR ACCIDENT [None]
  - COMPUTERISED TOMOGRAM ABNORMAL [None]
  - COUGH [None]
  - DILATATION VENTRICULAR [None]
  - DYSPNOEA [None]
  - FATIGUE [None]
  - JOINT SWELLING [None]
  - LABORATORY TEST ABNORMAL [None]
  - LEFT VENTRICULAR HEAVE [None]
  - NASOPHARYNGITIS [None]
  - OEDEMA PERIPHERAL [None]
  - PROSTATIC SPECIFIC ANTIGEN INCREASED [None]
  - PULMONARY ARTERIAL PRESSURE INCREASED [None]
  - VENOUS PRESSURE JUGULAR INCREASED [None]
  - WHEEZING [None]
